FAERS Safety Report 9193494 (Version 3)
Quarter: 2013Q2

REPORT INFORMATION
  Report Type: Spontaneous
  Country: US (occurrence: US)
  Receive Date: 20130327
  Receipt Date: 20130402
  Transmission Date: 20140414
  Serious: Yes (Death, Other)
  Sender: FDA-Public Use
  Company Number: US-PFIZER INC-A023477

PATIENT
  Age: 49 Year
  Sex: Female

DRUGS (4)
  1. SERTRALINE [Suspect]
     Indication: COMPLETED SUICIDE
     Dosage: UNK
     Route: 048
  2. THEOPHYLLINE [Suspect]
     Indication: COMPLETED SUICIDE
     Dosage: UNK
     Route: 048
  3. DILTIAZEM [Suspect]
     Indication: COMPLETED SUICIDE
     Dosage: UNK
     Route: 048
  4. MOTRIN [Suspect]
     Indication: COMPLETED SUICIDE
     Dosage: UNK
     Route: 048

REACTIONS (12)
  - Intentional overdose [Fatal]
  - Completed suicide [Fatal]
  - Hypokalaemia [Fatal]
  - Tachycardia [Fatal]
  - Dehydration [Fatal]
  - Vasodilation procedure [Fatal]
  - Hypoxia [Unknown]
  - Flushing [Unknown]
  - Hypertonia [Unknown]
  - Hypotension [Unknown]
  - Supraventricular extrasystoles [None]
  - Atrioventricular block [None]
